FAERS Safety Report 14000514 (Version 1)
Quarter: 2017Q3

REPORT INFORMATION
  Report Type: Spontaneous
  Country: DK (occurrence: DK)
  Receive Date: 20170922
  Receipt Date: 20170922
  Transmission Date: 20171128
  Serious: Yes (Hospitalization, Other)
  Sender: FDA-Public Use
  Company Number: DK-SUN PHARMACEUTICAL INDUSTRIES LTD-2015R1-98857

PATIENT
  Age: 39 Year
  Sex: Male

DRUGS (13)
  1. AMISULPRIDE [Concomitant]
     Active Substance: AMISULPRIDE
     Indication: PRODUCT USED FOR UNKNOWN INDICATION
     Dosage: 200 MG, QD (0 + 0 + 0 + 200 MG)
     Route: 065
  2. PROPRANOLOL [Concomitant]
     Active Substance: PROPRANOLOL HYDROCHLORIDE
     Indication: ANXIETY
     Dosage: 40 MG, DAILY (30 + 0 + 0 + 10 MG)
     Route: 065
  3. PREGABALIN. [Interacting]
     Active Substance: PREGABALIN
     Dosage: 450 MG, DAILY
     Route: 065
  4. PREGABALIN. [Interacting]
     Active Substance: PREGABALIN
     Indication: ANXIETY
     Dosage: 75 MG, DAILY
     Route: 065
  5. PREGABALIN. [Interacting]
     Active Substance: PREGABALIN
     Dosage: 150 MG, DAILY
     Route: 065
  6. PREGABALIN. [Interacting]
     Active Substance: PREGABALIN
     Dosage: 525 MG, DAILY
     Route: 065
  7. CITALOPRAM [Concomitant]
     Active Substance: CITALOPRAM HYDROBROMIDE
     Indication: ANXIETY
     Dosage: 20 MG, QD (0 + 0 + 0 + 20 MG)
     Route: 065
  8. PREGABALIN. [Interacting]
     Active Substance: PREGABALIN
     Dosage: 300 MG, DAILY
     Route: 065
  9. PREGABALIN. [Interacting]
     Active Substance: PREGABALIN
     Dosage: 600 MG, DAILY
     Route: 065
  10. ATROPINE. [Concomitant]
     Active Substance: ATROPINE
     Indication: SALIVARY HYPERSECRETION
     Dosage: 0.25 MG, TID (0.25 + 0 + 0.25 + 0.25 MG)
     Route: 065
  11. CLONAZEPAM. [Concomitant]
     Active Substance: CLONAZEPAM
     Indication: ANXIETY
     Dosage: 0.5 MG, BID (0 + 0 + 0.5 + 0.5 MG)
     Route: 065
  12. CLOZAPINE. [Suspect]
     Active Substance: CLOZAPINE
     Indication: SCHIZOPHRENIA
     Dosage: 500 MG, DAILY (100 + 0 + 0 + 400 MG)
     Route: 065
  13. CLONAZEPAM. [Concomitant]
     Active Substance: CLONAZEPAM
     Dosage: 0.5 MG, DAILY
     Route: 065

REACTIONS (7)
  - Drug interaction [Unknown]
  - Fall [Unknown]
  - Fracture [Unknown]
  - Loss of consciousness [Unknown]
  - Seizure [Recovered/Resolved]
  - Drug level increased [Unknown]
  - Off label use [Unknown]
